FAERS Safety Report 13280056 (Version 1)
Quarter: 2017Q1

REPORT INFORMATION
  Report Type: Spontaneous
  Country: US (occurrence: US)
  Receive Date: 20170228
  Receipt Date: 20170228
  Transmission Date: 20170428
  Serious: Yes (Disabling)
  Sender: FDA-Public Use
  Company Number: None

PATIENT
  Age: 9 Year
  Sex: Male
  Weight: 47.25 kg

DRUGS (1)
  1. MIRALAX [Suspect]
     Active Substance: POLYETHYLENE GLYCOL 3350
     Indication: CONSTIPATION
     Dosage: QUANTITY:1 TABLESPOON(S);?
     Route: 048
     Dates: start: 20141218, end: 20170213

REACTIONS (8)
  - Fear [None]
  - Phobia [None]
  - Emotional disorder [None]
  - Social avoidant behaviour [None]
  - Noctiphobia [None]
  - Depressed mood [None]
  - Anxiety [None]
  - Headache [None]

NARRATIVE: CASE EVENT DATE: 20150601
